FAERS Safety Report 9732674 (Version 1)
Quarter: 2013Q4

REPORT INFORMATION
  Report Type: Spontaneous
  Country: US (occurrence: None)
  Receive Date: 20131204
  Receipt Date: 20131204
  Transmission Date: 20140711
  Serious: Yes (Hospitalization)
  Sender: FDA-Public Use
  Company Number: None

PATIENT
  Age: 88 Year
  Sex: Female
  Weight: 54.7 kg

DRUGS (2)
  1. RIVAROXABAN [Suspect]
     Indication: ATRIAL FIBRILLATION
     Dosage: 1 PILL, QD, ORAL
     Route: 048
     Dates: start: 20130228, end: 20130429
  2. RIVAROXABAN [Suspect]
     Indication: TRANSIENT ISCHAEMIC ATTACK
     Dosage: 1 PILL, QD, ORAL
     Route: 048
     Dates: start: 20130228, end: 20130429

REACTIONS (2)
  - Haemoptysis [None]
  - Gastrointestinal haemorrhage [None]
